FAERS Safety Report 25456469 (Version 1)
Quarter: 2025Q2

REPORT INFORMATION
  Report Type: Spontaneous
  Country: FR (occurrence: FR)
  Receive Date: 20250619
  Receipt Date: 20250619
  Transmission Date: 20250716
  Serious: Yes (Hospitalization)
  Sender: TEVA
  Company Number: None

PATIENT
  Age: 85 Year
  Sex: Male
  Weight: 85.5 kg

DRUGS (2)
  1. VORICONAZOLE [Interacting]
     Active Substance: VORICONAZOLE
     Indication: Aspergillus infection
     Dosage: 200MG 1-0-1
     Route: 048
     Dates: start: 20250212, end: 20250221
  2. TAVNEOS [Interacting]
     Active Substance: AVACOPAN
     Indication: Vasculitis
     Dosage: 10MG 3-0-3
     Route: 048
     Dates: start: 20250123, end: 20250221

REACTIONS (2)
  - Hepatic cytolysis [Recovered/Resolved]
  - Drug interaction [Recovered/Resolved]

NARRATIVE: CASE EVENT DATE: 20250212
